FAERS Safety Report 15894376 (Version 1)
Quarter: 2019Q1

REPORT INFORMATION
  Report Type: Spontaneous
  Country: PL (occurrence: PL)
  Receive Date: 20190131
  Receipt Date: 20190131
  Transmission Date: 20190417
  Serious: Yes (Hospitalization, Other)
  Sender: FDA-Public Use
  Company Number: PL-ACCORD-103704

PATIENT
  Age: 23 Year
  Sex: Female

DRUGS (3)
  1. MYCOPHENOLIC ACID. [Suspect]
     Active Substance: MYCOPHENOLIC ACID
     Indication: IMMUNOSUPPRESSION
     Dosage: 3X500MG/DAY
     Dates: start: 201212
  2. CICLOSPORIN [Suspect]
     Active Substance: CYCLOSPORINE
     Indication: IMMUNOSUPPRESSION
     Dosage: THEN CORRECTED ACCORDING TO THE?DRUG LEVELS IN THE SERUM
     Dates: start: 201212
  3. SULFAMETHOXAZOLE/TRIMETHOPRIM [Suspect]
     Active Substance: SULFAMETHOXAZOLE\TRIMETHOPRIM
     Indication: IMMUNOSUPPRESSION
     Dosage: (INITIALLY 2 X 960MG/DAY, 4 DAYS/WEEK, AND THEN 2X480MG/DAY, 4 DAYS/WEEK AFTERWARDS)
     Dates: start: 201212

REACTIONS (6)
  - Hepatic failure [Recovered/Resolved]
  - Respiratory failure [Recovered/Resolved]
  - Protein-losing gastroenteropathy [Recovered/Resolved]
  - Cytomegalovirus infection [Recovered/Resolved]
  - Microsporidia infection [Recovered/Resolved]
  - Malabsorption [Recovered/Resolved]

NARRATIVE: CASE EVENT DATE: 201302
